FAERS Safety Report 6061542-9 (Version None)
Quarter: 2009Q1

REPORT INFORMATION
  Report Type: 
  Country: None (occurrence: None)
  Receive Date: 20090130
  Receipt Date: 20090130
  Transmission Date: 20090719
  Serious: Yes (Hospitalization)
  Sender: FDA-Public Use
  Company Number: None

PATIENT
  Sex: Male
  Weight: 57.9 kg

DRUGS (2)
  1. CYTARABINE [Suspect]
     Dosage: 39360 MG
  2. ELSPAR [Suspect]
     Dosage: 19680 IU

REACTIONS (6)
  - BLOOD CULTURE POSITIVE [None]
  - FALL [None]
  - FEBRILE NEUTROPENIA [None]
  - HYPOTENSION [None]
  - PNEUMONIA KLEBSIELLA [None]
  - SEPTIC SHOCK [None]
